FAERS Safety Report 23757555 (Version 1)
Quarter: 2024Q2

REPORT INFORMATION
  Report Type: Spontaneous
  Country: US (occurrence: US)
  Receive Date: 20240418
  Receipt Date: 20240418
  Transmission Date: 20240716
  Serious: Yes (Other)
  Sender: FDA-Public Use
  Company Number: US-PFIZER INC-202400088048

PATIENT
  Age: 56 Year
  Sex: Female

DRUGS (1)
  1. INLYTA [Suspect]
     Active Substance: AXITINIB
     Dosage: 3MG BY MOUTH EVERY TWELVE HOURS
     Route: 048
     Dates: start: 20230818

REACTIONS (1)
  - Nephrectomy [Not Recovered/Not Resolved]
